FAERS Safety Report 9028512 (Version 2)
Quarter: 2013Q1

REPORT INFORMATION
  Report Type: Report from Study
  Country: US (occurrence: US)
  Receive Date: 20130124
  Receipt Date: 20130307
  Transmission Date: 20140127
  Serious: Yes (Death, Life-Threatening, Hospitalization)
  Sender: FDA-Public Use
  Company Number: US-ROCHE-1179219

PATIENT
  Age: 62 Year
  Sex: Female
  Weight: 37 kg

DRUGS (4)
  1. ERLOTINIB [Suspect]
     Indication: BRONCHIOLOALVEOLAR CARCINOMA
     Dosage: LAST ADMINISTERED DATE: 06 JAN 2013
     Route: 065
     Dates: start: 20110127, end: 20130109
  2. ERLOTINIB [Suspect]
     Indication: ADENOCARCINOMA
  3. BEVACIZUMAB [Suspect]
     Indication: BRONCHIOLOALVEOLAR CARCINOMA
     Route: 065
     Dates: end: 20110825
  4. BEVACIZUMAB [Suspect]
     Indication: ADENOCARCINOMA

REACTIONS (2)
  - Cardiac failure [Fatal]
  - Ventricular arrhythmia [Unknown]
